FAERS Safety Report 7235698-6 (Version None)
Quarter: 2011Q1

REPORT INFORMATION
  Report Type: 
  Country: None (occurrence: None)
  Receive Date: 20110120
  Receipt Date: 20110114
  Transmission Date: 20110831
  Serious: Yes (Other)
  Sender: FDA-Public Use
  Company Number: ES-PFIZER INC-2011005543

PATIENT
  Age: 8 Year
  Sex: Male

DRUGS (4)
  1. MYLOTARG [Suspect]
     Indication: ACUTE MYELOID LEUKAEMIA
     Dosage: 3.5 MG, UNK
     Route: 042
     Dates: start: 20100712, end: 20100712
  2. IDARUBICIN [Concomitant]
     Indication: ACUTE MYELOID LEUKAEMIA
     Dosage: 11 MG, UNK
     Route: 042
     Dates: start: 20100712, end: 20100714
  3. CITARABINA [Concomitant]
     Indication: ACUTE MYELOID LEUKAEMIA
     Dosage: 2280 MG, UNK
     Route: 042
     Dates: start: 20100712, end: 20100715
  4. FLUDARABINE [Concomitant]
     Indication: ACUTE MYELOID LEUKAEMIA
     Dosage: 34 MG, UNK
     Route: 042
     Dates: start: 20100712, end: 20100715

REACTIONS (2)
  - ANAL ABSCESS [None]
  - LEUKAEMIA RECURRENT [None]
